FAERS Safety Report 12231819 (Version 1)
Quarter: 2016Q2

REPORT INFORMATION
  Report Type: Spontaneous
  Country: IT (occurrence: IT)
  Receive Date: 20160401
  Receipt Date: 20160401
  Transmission Date: 20160815
  Serious: Yes (Hospitalization)
  Sender: FDA-Public Use
  Company Number: PHHY2016IT027759

PATIENT
  Age: 80 Year
  Sex: Male

DRUGS (3)
  1. TAVOR//LORAZEPAM [Concomitant]
     Active Substance: LORAZEPAM
     Indication: INSOMNIA
     Dosage: 1 MG, UNK
     Route: 065
  2. LEVOFLOXACIN SANDOZ [Suspect]
     Active Substance: LEVOFLOXACIN
     Indication: BLADDER CATHETERISATION
     Dosage: 500 MG, QD
     Route: 048
     Dates: start: 20160213, end: 20160222
  3. AULIN [Concomitant]
     Active Substance: NIMESULIDE
     Indication: PAIN IN EXTREMITY
     Dosage: 200 MG, UNK
     Route: 048
     Dates: start: 20160213, end: 20160215

REACTIONS (3)
  - Pain in extremity [Recovered/Resolved with Sequelae]
  - Tendon injury [Recovered/Resolved with Sequelae]
  - Haematuria [Recovered/Resolved with Sequelae]

NARRATIVE: CASE EVENT DATE: 20160216
